FAERS Safety Report 12684912 (Version 1)
Quarter: 2016Q3

REPORT INFORMATION
  Report Type: Spontaneous
  Country: FR (occurrence: FR)
  Receive Date: 20160825
  Receipt Date: 20160825
  Transmission Date: 20161109
  Serious: Yes (Hospitalization, Other)
  Sender: FDA-Public Use
  Company Number: FR-ABBVIE-16P-056-1706954-00

PATIENT
  Age: 46 Year
  Sex: Male

DRUGS (4)
  1. HUMIRA [Suspect]
     Active Substance: ADALIMUMAB
     Dosage: DISCONTINUED (TEMPORARILY)
     Route: 058
  2. HUMIRA [Suspect]
     Active Substance: ADALIMUMAB
     Indication: ANKYLOSING SPONDYLITIS
     Dosage: DISCONTINUED (TEMPORARILY)
     Route: 058
     Dates: start: 2008
  3. HUMIRA [Suspect]
     Active Substance: ADALIMUMAB
     Dosage: DISCONTINUED (TEMPORARILY)
     Route: 058
  4. HUMIRA [Suspect]
     Active Substance: ADALIMUMAB
     Route: 058

REACTIONS (10)
  - Skin plaque [Not Recovered/Not Resolved]
  - Diarrhoea [Unknown]
  - Amoeba test positive [Unknown]
  - Lung infection [Unknown]
  - Haemorrhoids [Unknown]
  - Abdominal discomfort [Not Recovered/Not Resolved]
  - Prostatitis [Unknown]
  - Abdominal pain [Unknown]
  - Crohn^s disease [Unknown]
  - Urinary tract infection [Unknown]

NARRATIVE: CASE EVENT DATE: 201601
